FAERS Safety Report 6828738-7 (Version None)
Quarter: 2010Q3

REPORT INFORMATION
  Report Type: 
  Country: None (occurrence: None)
  Receive Date: 20100709
  Receipt Date: 20070416
  Transmission Date: 20110219
  Serious: Yes (Other)
  Sender: FDA-Public Use
  Company Number: US-PFIZER INC-2007013267

PATIENT
  Sex: Female
  Weight: 70.3 kg

DRUGS (6)
  1. CHANTIX [Suspect]
     Indication: SMOKING CESSATION THERAPY
     Route: 048
     Dates: start: 20070131
  2. LYRICA [Concomitant]
  3. CLONAZEPAM [Concomitant]
  4. XANAX [Concomitant]
  5. LEXAPRO [Concomitant]
  6. QUININE [Concomitant]

REACTIONS (3)
  - MULTIPLE SCLEROSIS [None]
  - PSYCHOMOTOR HYPERACTIVITY [None]
  - SWELLING [None]
